FAERS Safety Report 7810928-8 (Version None)
Quarter: 2011Q4

REPORT INFORMATION
  Report Type: 
  Country: None (occurrence: None)
  Receive Date: 20111013
  Receipt Date: 20111012
  Transmission Date: 20120403
  Serious: No
  Sender: FDA-Public Use
  Company Number: US-PFIZER INC-2011243904

PATIENT
  Sex: Female
  Weight: 74.83 kg

DRUGS (3)
  1. ASPIRIN [Concomitant]
     Indication: THROMBOSIS
     Dosage: 350 MG,DAILY
  2. LIPITOR [Suspect]
     Indication: BLOOD CHOLESTEROL INCREASED
     Dosage: UNK
     Route: 048
     Dates: start: 20111001
  3. TOPAMAX [Concomitant]
     Indication: CONVULSION
     Dosage: 20 MG,DAILY

REACTIONS (2)
  - DYSPNOEA [None]
  - MUSCLE DISORDER [None]
